FAERS Safety Report 4581464-X (Version None)
Quarter: 2005Q1

REPORT INFORMATION
  Report Type: 
  Country: None (occurrence: None)
  Receive Date: 20050214
  Receipt Date: 20041026
  Transmission Date: 20050727
  Serious: Yes (Hospitalization)
  Sender: FDA-Public Use
  Company Number: US-GLAXOSMITHKLINE-A0531758A

PATIENT
  Age: 21 Year
  Sex: Female
  Weight: 59.6 kg

DRUGS (2)
  1. LAMICTAL [Suspect]
     Indication: EPILEPSY
     Route: 048
     Dates: start: 20040101, end: 20040101
  2. VALPROATE [Concomitant]
     Indication: EPILEPSY
     Dosage: 250MG TWICE PER DAY
     Route: 048
     Dates: start: 19980101

REACTIONS (12)
  - CHEILITIS [None]
  - ERYTHEMA MULTIFORME [None]
  - MOUTH ULCERATION [None]
  - ORAL SOFT TISSUE DISORDER [None]
  - PARAESTHESIA ORAL [None]
  - RASH [None]
  - SCAB [None]
  - SKIN EXFOLIATION [None]
  - STEVENS-JOHNSON SYNDROME [None]
  - STOMATITIS [None]
  - SWELLING FACE [None]
  - WHITE BLOOD CELL COUNT INCREASED [None]
